FAERS Safety Report 9926477 (Version 3)
Quarter: 2014Q1

REPORT INFORMATION
  Report Type: Report from Study
  Country: TR (occurrence: TR)
  Receive Date: 20140226
  Receipt Date: 20140327
  Transmission Date: 20141002
  Serious: Yes (Other)
  Sender: FDA-Public Use
  Company Number: PHHY2013TR050790

PATIENT
  Age: 58 Year
  Sex: Female
  Weight: 42 kg

DRUGS (1)
  1. EXJADE [Suspect]
     Indication: THALASSAEMIA BETA
     Dosage: 750 MG, DAILY
     Route: 048
     Dates: start: 2009

REACTIONS (13)
  - Bile duct obstruction [Not Recovered/Not Resolved]
  - Infection [Not Recovered/Not Resolved]
  - Biliary tract infection [Recovered/Resolved]
  - Chest pain [Not Recovered/Not Resolved]
  - Breast pain [Not Recovered/Not Resolved]
  - Blood urea increased [Unknown]
  - Ovarian cyst [Unknown]
  - Influenza [Not Recovered/Not Resolved]
  - Jaundice [Not Recovered/Not Resolved]
  - Haemoglobin decreased [Unknown]
  - Blood creatinine increased [Unknown]
  - Abdominal pain lower [Not Recovered/Not Resolved]
  - Nausea [Not Recovered/Not Resolved]
